FAERS Safety Report 14057263 (Version 2)
Quarter: 2017Q4

REPORT INFORMATION
  Report Type: Spontaneous
  Country: JP (occurrence: JP)
  Receive Date: 20171006
  Receipt Date: 20171103
  Transmission Date: 20180321
  Serious: Yes (Hospitalization)
  Sender: FDA-Public Use
  Company Number: JP-B.I. PHARMACEUTICALS,INC./RIDGEFIELD-2017-NB-005781

PATIENT
  Age: 68 Year
  Sex: Male

DRUGS (2)
  1. GILOTRIF [Suspect]
     Active Substance: AFATINIB
     Indication: LUNG SQUAMOUS CELL CARCINOMA STAGE IV
     Route: 065
  2. TS-1 [Concomitant]
     Active Substance: GIMERACIL\OTERACIL\TEGAFUR
     Indication: LUNG SQUAMOUS CELL CARCINOMA STAGE IV
     Route: 048

REACTIONS (1)
  - Haemoptysis [Not Recovered/Not Resolved]
